FAERS Safety Report 4868989-4 (Version None)
Quarter: 2005Q4

REPORT INFORMATION
  Report Type: 
  Country: None (occurrence: None)
  Receive Date: 20051229
  Receipt Date: 20051213
  Transmission Date: 20060501
  Serious: Yes (Life-Threatening)
  Sender: FDA-Public Use
  Company Number: JP-ABBOTT-05P-087-0319510-00

PATIENT
  Age: 19 Year
  Sex: Female

DRUGS (9)
  1. SEVOFLURANE [Suspect]
     Indication: ANAESTHESIA
     Route: 055
     Dates: start: 20050318, end: 20050318
  2. VECURONIUM BROMIDE [Suspect]
     Indication: ANAESTHESIA
     Route: 042
     Dates: start: 20050318, end: 20050318
  3. FENTANYL [Concomitant]
     Indication: ANAESTHESIA
     Route: 042
     Dates: start: 20050318, end: 20050318
  4. PROPOFOL [Concomitant]
     Indication: ANAESTHESIA
     Route: 042
     Dates: start: 20050318, end: 20050318
  5. ATROPINE SULFATE [Concomitant]
     Indication: ANAESTHESIA REVERSAL
     Route: 042
     Dates: start: 20050318, end: 20050318
  6. NEOSTIGMINE [Concomitant]
     Indication: ANAESTHESIA REVERSAL
     Route: 042
     Dates: start: 20050318, end: 20050318
  7. LIDOCAINE [Concomitant]
     Indication: ANAESTHESIA
     Route: 042
     Dates: start: 20050318, end: 20050318
  8. FLURBIPROFEN AXETIL [Concomitant]
     Indication: ANALGESIC EFFECT
     Route: 042
     Dates: start: 20050318, end: 20050318
  9. EPHEDRINE [Concomitant]
     Indication: HYPOTENSION
     Route: 042
     Dates: start: 20050318, end: 20050318

REACTIONS (1)
  - RESPIRATORY FAILURE [None]
